FAERS Safety Report 18206071 (Version 1)
Quarter: 2020Q3

REPORT INFORMATION
  Report Type: Other
  Country: FR (occurrence: FR)
  Receive Date: 20200828
  Receipt Date: 20200828
  Transmission Date: 20201103
  Serious: Yes (Death)
  Sender: FDA-Public Use
  Company Number: FR-CADILA HEALTHCARE LIMITED-FR-ZYDUS-036489

PATIENT

DRUGS (7)
  1. PRAZEPAM [Suspect]
     Active Substance: PRAZEPAM
     Indication: BURNOUT SYNDROME
     Dosage: 3 DOSAGE FORM,(INTERVAL :1 DAYS)
     Route: 048
     Dates: start: 201812
  2. VENLAFAXINE [Suspect]
     Active Substance: VENLAFAXINE HYDROCHLORIDE
     Indication: BURNOUT SYNDROME
     Dosage: 3 DOSAGE FORM,(INTERVAL :1 DAYS)
     Route: 048
     Dates: start: 201812
  3. TIAPRIDE [Suspect]
     Active Substance: TIAPRIDE
     Indication: PRODUCT USED FOR UNKNOWN INDICATION
     Dosage: UNK
     Route: 048
  4. LORMETAZEPAM [Concomitant]
     Active Substance: LORMETAZEPAM
     Indication: BURNOUT SYNDROME
     Dosage: 1 DOSAGE FORM,(INTERVAL :1 DAYS)
     Route: 048
     Dates: start: 201812
  5. THERALENE [Suspect]
     Active Substance: TRIMEPRAZINE
     Indication: BURNOUT SYNDROME
     Dosage: 30,(INTERVAL :1 DAYS)
     Route: 048
     Dates: start: 201812
  6. TERCIAN [CYAMEMAZINE] [Concomitant]
     Active Substance: CYAMEMAZINE
     Indication: BURNOUT SYNDROME
     Dosage: 2 DOSAGE FORM,(INTERVAL :1 DAYS)
     Route: 048
     Dates: start: 201812
  7. DECONTRACTYL (MEPHENESIN\METHYL NICOTINATE) [Suspect]
     Active Substance: MEPHENESIN\METHYL NICOTINATE
     Indication: NECK PAIN
     Dosage: 1 TO 2 BOXES UP TO 5 ACCORDING TO THE ENTOURAGE
     Route: 048
     Dates: start: 2012

REACTIONS (4)
  - Depressed level of consciousness [Fatal]
  - Respiratory depression [Fatal]
  - Poisoning deliberate [Fatal]
  - Aspiration [Fatal]
